FAERS Safety Report 7827723-6 (Version None)
Quarter: 2011Q4

REPORT INFORMATION
  Report Type: 
  Country: None (occurrence: None)
  Receive Date: 20111018
  Receipt Date: 20111005
  Transmission Date: 20120403
  Serious: Yes (Hospitalization)
  Sender: FDA-Public Use
  Company Number: UTC-010890

PATIENT
  Age: 31 Year
  Sex: Female
  Weight: 160.9 kg

DRUGS (3)
  1. TRACLEER [Concomitant]
  2. ADCIRCA [Concomitant]
  3. REMODULIN [Suspect]
     Indication: PULMONARY ARTERIAL HYPERTENSION
     Dosage: 37.44 UG/KG (0.026 UG/KG, 1 IN 1 MIN), INTRAVENOUS
     Route: 042
     Dates: start: 20110630

REACTIONS (3)
  - PRESYNCOPE [None]
  - DYSPNOEA [None]
  - DIZZINESS [None]
